FAERS Safety Report 4795755-0 (Version None)
Quarter: 2005Q3

REPORT INFORMATION
  Report Type: 
  Country: None (occurrence: None)
  Receive Date: 20050929
  Receipt Date: 20050722
  Transmission Date: 20060218
  Serious: No
  Sender: FDA-Public Use
  Company Number: 05P-163-0306624-00

PATIENT
  Age: 57 Year
  Sex: Female
  Weight: 73.4827 kg

DRUGS (7)
  1. HUMIRA [Suspect]
     Indication: RHEUMATOID ARTHRITIS
     Dosage: 40 MG, 1 IN 2 WK, SUBCUTANEOUS
     Route: 058
     Dates: start: 20030101
  2. MINOCYCLINE [Concomitant]
  3. RALOXIFENE HYDROCHLORIDE [Concomitant]
  4. RISEDRONATE SODIUM [Concomitant]
  5. SINGULAIR [Concomitant]
  6. ADVAIR DISKUS 100/50 [Concomitant]
  7. FLUTICASONE PROPIONATE [Concomitant]

REACTIONS (2)
  - ARTHRITIS [None]
  - DRUG EFFECT DECREASED [None]
